FAERS Safety Report 19238949 (Version 2)
Quarter: 2021Q2

REPORT INFORMATION
  Report Type: Spontaneous
  Country: US (occurrence: US)
  Receive Date: 20210510
  Receipt Date: 20210607
  Transmission Date: 20210717
  Serious: Yes (Other)
  Sender: FDA-Public Use
  Company Number: US-BAYER-2021-137770

PATIENT
  Age: 13 Year
  Sex: Male

DRUGS (3)
  1. KOGENATE FS [Suspect]
     Active Substance: ANTIHEMOPHILIC FACTOR, HUMAN RECOMBINANT
     Dosage: 1 DF, ONCE; HE INFUSED WITH IN 3 HRS OF BLEED ONSET
     Route: 042
     Dates: start: 20210502, end: 20210502
  2. KOGENATE FS [Suspect]
     Active Substance: ANTIHEMOPHILIC FACTOR, HUMAN RECOMBINANT
     Dosage: 1 DF, ONCE; TO RESOLVE BLEED
     Route: 042
     Dates: start: 20210531, end: 20210531
  3. KOGENATE FS [Suspect]
     Active Substance: ANTIHEMOPHILIC FACTOR, HUMAN RECOMBINANT
     Dosage: 2500 U
     Route: 042

REACTIONS (4)
  - Injury [Recovered/Resolved]
  - Traumatic haemorrhage [Recovered/Resolved]
  - Traumatic haemorrhage [Recovered/Resolved]
  - Head injury [Recovered/Resolved]

NARRATIVE: CASE EVENT DATE: 20210429
